FAERS Safety Report 12104237 (Version 1)
Quarter: 2016Q1

REPORT INFORMATION
  Report Type: Spontaneous
  Country: BG (occurrence: BG)
  Receive Date: 20160223
  Receipt Date: 20160223
  Transmission Date: 20160526
  Serious: Yes (Other)
  Sender: FDA-Public Use
  Company Number: BG-SUN PHARMACEUTICAL INDUSTRIES LTD-2016RR-112004

PATIENT

DRUGS (4)
  1. ALERGOSAN (PROMETHAZINE) [Suspect]
     Active Substance: PROMETHAZINE HYDROCHLORIDE
     Indication: MACULAR OEDEMA
     Dosage: 2 DF, QD
     Route: 030
  2. AMOXICILLIN/CLAVULANIC ACID [Suspect]
     Active Substance: AMOXICILLIN\CLAVULANIC ACID
     Indication: INFECTED BITE
     Dosage: UNK
     Route: 048
  3. METHYLPREDNISOLONE. [Suspect]
     Active Substance: METHYLPREDNISOLONE
     Indication: MACULAR OEDEMA
     Dosage: 60 MG, QD
     Route: 042
  4. LORATADINE. [Concomitant]
     Active Substance: LORATADINE
     Indication: INFECTED BITE
     Dosage: 1 DF, DAILY
     Route: 065

REACTIONS (2)
  - Vasculitic rash [Recovered/Resolved with Sequelae]
  - Pneumonitis [Recovered/Resolved with Sequelae]
